FAERS Safety Report 7102490-2 (Version None)
Quarter: 2010Q4

REPORT INFORMATION
  Report Type: 
  Country: None (occurrence: None)
  Receive Date: 20101115
  Receipt Date: 20101103
  Transmission Date: 20110411
  Serious: Yes (Other)
  Sender: FDA-Public Use
  Company Number: US-JNJFOC-20101102150

PATIENT
  Age: 48 Year
  Sex: Female
  Weight: 81.65 kg

DRUGS (1)
  1. EXTRA STRENGTH TYLENOL PM [Suspect]
     Indication: INSOMNIA
     Dosage: 9 PILLS IN THE MORNING AND 9 PILLS AT NIGHT, ON THE SAME DAY
     Route: 048

REACTIONS (5)
  - AMNESIA [None]
  - FEELING ABNORMAL [None]
  - OVERDOSE [None]
  - PRODUCT QUALITY ISSUE [None]
  - VERTIGO [None]
